FAERS Safety Report 6785965-5 (Version None)
Quarter: 2010Q2

REPORT INFORMATION
  Report Type: 
  Country: None (occurrence: None)
  Receive Date: 20100623
  Receipt Date: 20100615
  Transmission Date: 20101027
  Serious: Yes (Other)
  Sender: FDA-Public Use
  Company Number: IT-JNJFOC-20100406476

PATIENT
  Age: 26 Year
  Sex: Male

DRUGS (4)
  1. TAVANIC [Suspect]
     Indication: PNEUMONIA VIRAL
     Route: 048
  2. AMOXICILLIN AND CLAVULANATE POTASSIUM [Suspect]
     Indication: PNEUMONIA VIRAL
     Route: 048
  3. PARACETAMOL [Suspect]
     Route: 048
  4. PARACETAMOL [Suspect]
     Indication: DRUG USE FOR UNKNOWN INDICATION
     Route: 048

REACTIONS (2)
  - ERYTHEMA MULTIFORME [None]
  - RASH MORBILLIFORM [None]
